FAERS Safety Report 6614618-9 (Version None)
Quarter: 2010Q1

REPORT INFORMATION
  Report Type: 
  Country: None (occurrence: None)
  Receive Date: 20100226
  Receipt Date: 20100219
  Transmission Date: 20100710
  Serious: Yes (Hospitalization)
  Sender: FDA-Public Use
  Company Number: TPA2010A00795

PATIENT
  Age: 80 Year
  Sex: Female

DRUGS (4)
  1. KAPIDEX [Suspect]
     Indication: GASTROOESOPHAGEAL REFLUX DISEASE
     Dosage: 60 MG, 1 IN 1 D, PER ORAL
     Route: 048
     Dates: start: 20091203, end: 20091210
  2. ATENOLOL [Concomitant]
  3. XANAX [Concomitant]
  4. ASPIRIN [Concomitant]

REACTIONS (5)
  - ANXIETY [None]
  - CONFUSIONAL STATE [None]
  - DISORIENTATION [None]
  - DYSARTHRIA [None]
  - THROMBOCYTOPENIA [None]
